FAERS Safety Report 7474767-2 (Version None)
Quarter: 2011Q2

REPORT INFORMATION
  Report Type: 
  Country: None (occurrence: None)
  Receive Date: 20110505
  Receipt Date: 20110420
  Transmission Date: 20111010
  Serious: Yes (Hospitalization)
  Sender: FDA-Public Use
  Company Number: 2011-1268

PATIENT
  Age: 63 Year
  Sex: Male

DRUGS (1)
  1. APO-GO AMPOULES (APO-GO) (APOMORPHINE HYDROCHLORIDE) (APOMORPHINE HYDR [Suspect]
     Indication: PRODUCT USED FOR UNKNOWN INDICATION
     Dosage: 0.4 MG/H FOR 12.5H/DAY(NOT REPORTED, 09:30 TO 22:00 DAILY, SUBCUTANEOUS
     Route: 058
     Dates: start: 20080703

REACTIONS (3)
  - SOMNOLENCE [None]
  - FALL [None]
  - LIVER FUNCTION TEST [None]
